FAERS Safety Report 4555380-3 (Version None)
Quarter: 2005Q1

REPORT INFORMATION
  Report Type: 
  Country: None (occurrence: None)
  Receive Date: 20050118
  Receipt Date: 20050118
  Transmission Date: 20050727
  Serious: Yes (Other)
  Sender: FDA-Public Use
  Company Number: None

PATIENT
  Age: 42 Year
  Sex: Male
  Weight: 79.3795 kg

DRUGS (1)
  1. SEREVENT [Suspect]
     Indication: ASTHMA
     Dosage: ONE BREATH  TWICE  A DAY ORAL
     Route: 048
     Dates: start: 20031004, end: 20040217

REACTIONS (1)
  - ASTHMA [None]
